FAERS Safety Report 4701963-7 (Version None)
Quarter: 2005Q2

REPORT INFORMATION
  Report Type: 
  Country: None (occurrence: None)
  Receive Date: 20050627
  Receipt Date: 20050614
  Transmission Date: 20051028
  Serious: Yes (Other)
  Sender: FDA-Public Use
  Company Number: 2005089066

PATIENT
  Sex: Female
  Weight: 60.782 kg

DRUGS (1)
  1. XALATAN [Suspect]
     Indication: GLAUCOMA
     Dosage: 2 DRIP (1 DROP , 1 IN 1 D)
     Dates: start: 20020101, end: 20050610

REACTIONS (3)
  - CATARACT [None]
  - CONDITION AGGRAVATED [None]
  - FOREIGN BODY SENSATION IN EYES [None]
